FAERS Safety Report 4575893-8 (Version None)
Quarter: 2005Q1

REPORT INFORMATION
  Report Type: 
  Country: None (occurrence: None)
  Receive Date: 20050207
  Receipt Date: 20050131
  Transmission Date: 20050727
  Serious: Yes (Other)
  Sender: FDA-Public Use
  Company Number: 004003

PATIENT
  Age: 36 Year
  Sex: Female
  Weight: 49.9 kg

DRUGS (2)
  1. FLUOXETINE [Suspect]
     Indication: DEPRESSION
     Dosage: 20 MG, QD, ORAL
     Route: 048
     Dates: start: 20050124, end: 20050128
  2. WELLBUTRIN - SLOW RELEASE (BUPROPION HYDROCHLORIDE) 150 MG [Suspect]
     Indication: DEPRESSION
     Dosage: 150 MG, QD, ORAL
     Route: 048
     Dates: start: 20050124, end: 20050128

REACTIONS (5)
  - AMNESIA [None]
  - DISORIENTATION [None]
  - DRUG INTERACTION [None]
  - LOSS OF CONSCIOUSNESS [None]
  - NAUSEA [None]
